FAERS Safety Report 12335685 (Version 1)
Quarter: 2016Q2

REPORT INFORMATION
  Report Type: Other
  Country: GB (occurrence: GB)
  Receive Date: 20160505
  Receipt Date: 20160505
  Transmission Date: 20160815
  Serious: Yes (Other)
  Sender: FDA-Public Use
  Company Number: GB-DEXPHARM-20160761

PATIENT
  Age: 52 Year
  Sex: Female

DRUGS (6)
  1. TRAMADOL. [Concomitant]
     Active Substance: TRAMADOL
  2. SIMVASTATIN. [Concomitant]
     Active Substance: SIMVASTATIN
  3. LEVETIRACETAM. [Suspect]
     Active Substance: LEVETIRACETAM
  4. IRON [Concomitant]
     Active Substance: IRON
  5. FOLIC ACID. [Concomitant]
     Active Substance: FOLIC ACID
  6. CITALOPRAM [Concomitant]
     Active Substance: CITALOPRAM HYDROBROMIDE

REACTIONS (1)
  - Tubulointerstitial nephritis [Not Recovered/Not Resolved]
